FAERS Safety Report 9617072 (Version 1)
Quarter: 2013Q4

REPORT INFORMATION
  Report Type: Spontaneous
  Country: JP (occurrence: JP)
  Receive Date: 20131011
  Receipt Date: 20131011
  Transmission Date: 20140711
  Serious: Yes (Hospitalization)
  Sender: FDA-Public Use
  Company Number: JP-BIOGENIDEC-2013BI098147

PATIENT
  Age: 52 Year
  Sex: Male

DRUGS (7)
  1. AVONEX [Suspect]
     Indication: RELAPSING-REMITTING MULTIPLE SCLEROSIS
     Route: 030
     Dates: start: 20100522, end: 20101012
  2. CLONAZEPAM [Concomitant]
     Dates: start: 20100528
  3. AMANTADINE HYDROCHLORIDE [Concomitant]
     Dates: start: 20100528
  4. AROTINOLOL HYDROCHLORIDE [Concomitant]
     Dates: start: 20100528
  5. GABAPENTIN [Concomitant]
     Dates: start: 20100528, end: 20101011
  6. HARNAL D [Concomitant]
     Dates: start: 20100528
  7. HOCHUEKKITO [Concomitant]
     Dates: start: 20100528

REACTIONS (1)
  - Vision blurred [Not Recovered/Not Resolved]
